FAERS Safety Report 8657663 (Version 2)
Quarter: 2012Q4

REPORT INFORMATION
  Report Type: 
  Country: US (occurrence: US)
  Receive Date: 20120710
  Receipt Date: 20121122
  Transmission Date: 20130627
  Serious: Yes (Other)
  Sender: FDA-Public Use
  Company Number: US-BRISTOL-MYERS SQUIBB COMPANY-16723538

PATIENT
  Age: 50 Year
  Sex: Male

DRUGS (5)
  1. BARACLUDE [Suspect]
     Dosage: Baraclude for about 4 to 5 years
  2. ALOXI [Concomitant]
  3. EMEND [Concomitant]
  4. COMPAZINE [Concomitant]
  5. DECADRON [Concomitant]

REACTIONS (1)
  - Laryngeal cancer [Unknown]
